FAERS Safety Report 16691986 (Version 3)
Quarter: 2022Q1

REPORT INFORMATION
  Report Type: Spontaneous
  Country: JP (occurrence: JP)
  Receive Date: 20190812
  Receipt Date: 20220315
  Transmission Date: 20220423
  Serious: Yes (Other)
  Sender: FDA-Public Use
  Company Number: JP-TEVA-2019-JP-1087105

PATIENT
  Age: 70 Year
  Sex: Male

DRUGS (9)
  1. CISPLATIN [Suspect]
     Active Substance: CISPLATIN
     Indication: Lung adenocarcinoma stage IV
     Dosage: UNK, CYCLIC (SECOND-LINE THERAPY)
     Route: 065
     Dates: start: 2008
  2. DOCETAXEL [Suspect]
     Active Substance: DOCETAXEL
     Indication: Lung adenocarcinoma stage IV
     Dosage: UNK, CYCLIC
     Route: 065
     Dates: start: 2014, end: 2017
  3. PEMETREXED [Suspect]
     Active Substance: PEMETREXED
     Indication: Lung adenocarcinoma stage IV
     Dosage: UNK, CYCLIC
     Route: 065
     Dates: start: 2014, end: 2017
  4. CARBOPLATIN [Suspect]
     Active Substance: CARBOPLATIN
     Indication: Lung adenocarcinoma stage IV
     Dosage: UNK, CYCLIC (FIRST-LINE THERAPY)
     Route: 065
     Dates: start: 2008
  5. PACLITAXEL [Suspect]
     Active Substance: PACLITAXEL
     Indication: Lung adenocarcinoma stage IV
     Dosage: UNK, CYCLIC (FIRST-LINE THERAPY)
     Route: 065
     Dates: start: 2008
  6. TS-1 [Suspect]
     Active Substance: GIMERACIL\OTERACIL\TEGAFUR
     Indication: Lung adenocarcinoma stage IV
     Dosage: UNK, CYCLIC (SECOND-LINE THERAPY)
     Route: 065
     Dates: start: 2008
  7. ERLOTINIB [Suspect]
     Active Substance: ERLOTINIB
     Indication: Lung adenocarcinoma stage IV
     Dosage: UNK, CYCLIC
     Route: 065
     Dates: start: 2009, end: 2014
  8. AFATINIB [Suspect]
     Active Substance: AFATINIB
     Indication: Lung adenocarcinoma stage IV
     Dosage: UNK, CYCLIC
     Route: 065
     Dates: start: 2014, end: 2017
  9. OSIMERTINIB [Suspect]
     Active Substance: OSIMERTINIB
     Indication: Lung adenocarcinoma stage IV
     Dosage: UNK, CYCLIC
     Route: 065
     Dates: start: 2017

REACTIONS (3)
  - Second primary malignancy [Unknown]
  - Malignant fibrous histiocytoma [Unknown]
  - Neoplasm progression [Unknown]

NARRATIVE: CASE EVENT DATE: 20180101
